FAERS Safety Report 19418817 (Version 1)
Quarter: 2021Q2

REPORT INFORMATION
  Report Type: Spontaneous
  Country: US (occurrence: US)
  Receive Date: 20210615
  Receipt Date: 20210615
  Transmission Date: 20210717
  Serious: Yes (Other)
  Sender: FDA-Public Use
  Company Number: NVSC2021US130454

PATIENT
  Age: 70 Year
  Sex: Female

DRUGS (3)
  1. PATADAY [Suspect]
     Active Substance: OLOPATADINE HYDROCHLORIDE
     Indication: LACRIMATION INCREASED
  2. PATADAY [Suspect]
     Active Substance: OLOPATADINE HYDROCHLORIDE
     Indication: DRY EYE
     Dosage: UNK
     Route: 065
     Dates: start: 20210217
  3. PATADAY [Suspect]
     Active Substance: OLOPATADINE HYDROCHLORIDE
     Indication: HYPERTENSION

REACTIONS (7)
  - Ocular discomfort [Unknown]
  - Drug ineffective [Unknown]
  - Product dose omission issue [Unknown]
  - Visual impairment [Unknown]
  - Condition aggravated [Unknown]
  - Off label use [Unknown]
  - Posterior capsule opacification [Unknown]
